FAERS Safety Report 16790106 (Version 2)
Quarter: 2019Q4

REPORT INFORMATION
  Report Type: Report from Study
  Country: US (occurrence: US)
  Receive Date: 20190910
  Receipt Date: 20191121
  Transmission Date: 20200122
  Serious: No
  Sender: FDA-Public Use
  Company Number: US-SA-2019SA250531

PATIENT
  Sex: Female

DRUGS (1)
  1. DUPILUMAB [Suspect]
     Active Substance: DUPILUMAB
     Indication: DERMATITIS ATOPIC
     Dosage: 300 MG, QOW
     Route: 058

REACTIONS (7)
  - Incorrect dose administered by device [Unknown]
  - Oropharyngeal pain [Unknown]
  - Fatigue [Unknown]
  - Erythema [Unknown]
  - Device leakage [Unknown]
  - Injection site swelling [Unknown]
  - Injection site pain [Unknown]
